FAERS Safety Report 6279629-4 (Version None)
Quarter: 2009Q3

REPORT INFORMATION
  Report Type: 
  Country: None (occurrence: None)
  Receive Date: 20090723
  Receipt Date: 20090714
  Transmission Date: 20100115
  Serious: Yes (Other)
  Sender: FDA-Public Use
  Company Number: B0584931A

PATIENT
  Age: 29 Year
  Sex: Male

DRUGS (3)
  1. WELLBUTRIN [Suspect]
     Indication: DEPRESSION
     Route: 065
     Dates: start: 20090704
  2. ATARAX [Suspect]
     Indication: DRUG USE FOR UNKNOWN INDICATION
     Dosage: 25MG TWICE PER DAY
     Route: 065
     Dates: start: 20090711
  3. UNSPECIFIED DRUG [Concomitant]
     Dates: start: 20090701

REACTIONS (3)
  - AGGRESSION [None]
  - ANXIETY [None]
  - FEAR [None]
